FAERS Safety Report 16687490 (Version 4)
Quarter: 2019Q3

REPORT INFORMATION
  Report Type: Spontaneous
  Country: FR (occurrence: FR)
  Receive Date: 20190809
  Receipt Date: 20190903
  Transmission Date: 20191004
  Serious: Yes (Hospitalization, Other)
  Sender: FDA-Public Use
  Company Number: FR-PFIZER INC-2019342242

PATIENT
  Age: 86 Year
  Sex: Male
  Weight: 45 kg

DRUGS (9)
  1. ATORVASTATIN CALCIUM. [Suspect]
     Active Substance: ATORVASTATIN CALCIUM
     Dosage: 10 MG, 1X/DAY (QD)
     Route: 048
  2. BISOPROLOL FUMARATE. [Suspect]
     Active Substance: BISOPROLOL FUMARATE
     Dosage: 1.25 MG, 1X/DAY (QD)
     Route: 048
  3. INSPRA [Concomitant]
     Active Substance: EPLERENONE
     Dosage: 25 MG, 1X/DAY (QD)
     Route: 048
     Dates: end: 20190701
  4. INEXIUM [ESOMEPRAZOLE MAGNESIUM] [Concomitant]
     Active Substance: ESOMEPRAZOLE MAGNESIUM
     Dosage: 20 MG, 1X/DAY (QD)
     Route: 048
     Dates: start: 20190630, end: 20190630
  5. COLCHICINE. [Suspect]
     Active Substance: COLCHICINE
     Dosage: 1 MG, DAILY (QD)
     Route: 048
     Dates: start: 20190705, end: 20190711
  6. ASPEGIC [ACETYLSALICYLATE LYSINE] [Suspect]
     Active Substance: ASPIRIN DL-LYSINE
     Indication: CARDIAC FAILURE
     Dosage: 1000 MG, 1X/DAY (QD)
     Route: 048
     Dates: start: 20190626, end: 20190630
  7. COLCHICINE. [Suspect]
     Active Substance: COLCHICINE
     Indication: CARDIAC FAILURE
     Dosage: 1 DF, DAILY
     Route: 048
     Dates: start: 20190626, end: 20190630
  8. LANSOPRAZOLE. [Suspect]
     Active Substance: LANSOPRAZOLE
     Dosage: 1 DF, 1X/DAY (QD)
     Route: 048
     Dates: start: 20190701, end: 20190715
  9. ENTRESTO [Concomitant]
     Active Substance: SACUBITRIL\VALSARTAN
     Dosage: 1 DF, 1X/DAY (QD)
     Route: 048
     Dates: start: 20190701, end: 20190701

REACTIONS (1)
  - Thrombocytopenia [Recovering/Resolving]

NARRATIVE: CASE EVENT DATE: 20190630
